FAERS Safety Report 4418133-2 (Version None)
Quarter: 2004Q3

REPORT INFORMATION
  Report Type: 
  Country: None (occurrence: None)
  Receive Date: 20040805
  Receipt Date: 20040805
  Transmission Date: 20050211
  Serious: No
  Sender: FDA-Public Use
  Company Number: None

PATIENT
  Sex: Male
  Weight: 74.8435 kg

DRUGS (1)
  1. NAFCILLIN SODIUM [Suspect]
     Indication: ENDOCARDITIS BACTERIAL
     Dosage: 2 GM IV Q4H
     Route: 042
     Dates: start: 20040721, end: 20040728

REACTIONS (1)
  - RASH ERYTHEMATOUS [None]
